FAERS Safety Report 10902416 (Version 2)
Quarter: 2015Q2

REPORT INFORMATION
  Report Type: Spontaneous
  Country: AU (occurrence: AU)
  Receive Date: 20150310
  Receipt Date: 20150602
  Transmission Date: 20150821
  Serious: Yes (Other)
  Sender: FDA-Public Use
  Company Number: AU-ELI_LILLY_AND_COMPANY-AU201503000596

PATIENT
  Sex: Female
  Weight: 80 kg

DRUGS (4)
  1. BACTRIM [Concomitant]
     Active Substance: SULFAMETHOXAZOLE\TRIMETHOPRIM
     Indication: OSTEOMYELITIS
     Dosage: UNK, UNKNOWN
     Route: 065
  2. CYMBALTA [Suspect]
     Active Substance: DULOXETINE HYDROCHLORIDE
     Indication: DEPRESSION
     Dosage: 60 MG, QD
     Route: 065
     Dates: start: 201403
  3. CIPROXIM [Interacting]
     Active Substance: CIPROFLOXACIN HYDROCHLORIDE
     Indication: OSTEOMYELITIS
     Dosage: UNK, UNKNOWN
     Route: 065
  4. CYMBALTA [Interacting]
     Active Substance: DULOXETINE HYDROCHLORIDE
     Indication: NEURALGIA
     Dosage: UNK, UNKNOWN
     Route: 065
     Dates: end: 201502

REACTIONS (4)
  - Purpura [Recovered/Resolved]
  - Dystonia [Recovered/Resolved]
  - Drug interaction [Recovered/Resolved]
  - Off label use [Recovered/Resolved]
